FAERS Safety Report 18855329 (Version 3)
Quarter: 2021Q1

REPORT INFORMATION
  Report Type: Report from Study
  Country: ZA (occurrence: ZA)
  Receive Date: 20210205
  Receipt Date: 20210316
  Transmission Date: 20210420
  Serious: Yes (Other)
  Sender: FDA-Public Use
  Company Number: ZA-GILEAD-2021-0515911

PATIENT
  Sex: Female
  Weight: 24.7 kg

DRUGS (13)
  1. EMTRICITABINE/TENOFOVIR ALAFENAMIDE [Suspect]
     Active Substance: EMTRICITABINE\TENOFOVIR
     Indication: HIV INFECTION
     Dosage: 1 DOSAGE FORM, QD
     Route: 048
     Dates: start: 20210106
  2. RITONAVIR. [Concomitant]
     Active Substance: RITONAVIR
     Dosage: UNK
     Dates: start: 20210120, end: 2021
  3. COBICISTAT [Suspect]
     Active Substance: COBICISTAT
     Indication: HIV INFECTION
     Dosage: 90 MG, QD
     Route: 048
     Dates: start: 20210106, end: 20210119
  4. LOPINAVIR [Concomitant]
     Active Substance: LOPINAVIR
     Indication: HIV INFECTION
     Dosage: 200 MG
     Route: 065
     Dates: start: 20110930, end: 20210105
  5. RITONAVIR. [Concomitant]
     Active Substance: RITONAVIR
     Indication: HIV INFECTION
     Dosage: 100 MG
     Route: 065
     Dates: start: 20110930, end: 20210105
  6. TENOFOVIR ALAFENAMIDE [Concomitant]
     Active Substance: TENOFOVIR ALAFENAMIDE
     Indication: HIV INFECTION
     Dates: start: 20190114
  7. EMTRICITABINE [Concomitant]
     Active Substance: EMTRICITABINE
     Indication: HIV INFECTION
     Dates: start: 20210106
  8. ATAZANAVIR. [Suspect]
     Active Substance: ATAZANAVIR
     Indication: HIV INFECTION
     Dosage: 200 MG, QD
     Route: 048
     Dates: start: 20210106, end: 20210119
  9. ATAZANAVIR. [Suspect]
     Active Substance: ATAZANAVIR
     Dosage: 200 MG, QD
     Route: 048
     Dates: start: 20210202, end: 20210211
  10. RITONAVIR. [Concomitant]
     Active Substance: RITONAVIR
     Dosage: UNK
     Dates: start: 20210212
  11. COBICISTAT [Suspect]
     Active Substance: COBICISTAT
     Dosage: 90 MG, QD
     Route: 048
     Dates: start: 20210202, end: 20210211
  12. LOPINAVIR [Concomitant]
     Active Substance: LOPINAVIR
     Dosage: UNK
     Dates: start: 20210120, end: 2021
  13. LOPINAVIR [Concomitant]
     Active Substance: LOPINAVIR
     Dosage: UNK
     Dates: start: 20210212

REACTIONS (1)
  - Hyperbilirubinaemia [Recovered/Resolved]

NARRATIVE: CASE EVENT DATE: 20210112
